FAERS Safety Report 6675068-2 (Version None)
Quarter: 2010Q2

REPORT INFORMATION
  Report Type: 
  Country: None (occurrence: None)
  Receive Date: 20100409
  Receipt Date: 20100406
  Transmission Date: 20101027
  Serious: Yes (Hospitalization)
  Sender: FDA-Public Use
  Company Number: US-TEVA-230202USA

PATIENT
  Age: 84 Year
  Sex: Female
  Weight: 59 kg

DRUGS (13)
  1. AMOXICILLIN 250 MG + 500 MG CAPSULES [Suspect]
     Dates: end: 20100318
  2. FEBUXOSTAT [Suspect]
     Route: 048
  3. OMEPRAZOLE [Suspect]
     Dates: end: 20100318
  4. CLARITHROMYCIN [Suspect]
     Dates: end: 20100318
  5. POTASSIUM [Concomitant]
  6. LIDOCAINE [Concomitant]
  7. METOCLOPRAMIDE HYDROCHLORIDE [Concomitant]
  8. MULTI-VITAMIN [Concomitant]
  9. METOPROLOL SUCCINATE [Concomitant]
  10. VITRON C [Concomitant]
  11. VICODIN [Concomitant]
  12. BISMUTH SUBSALICYLATE [Concomitant]
  13. ONDANSETRON [Concomitant]

REACTIONS (3)
  - DEHYDRATION [None]
  - NEUTROPENIA [None]
  - THROMBOCYTOPENIA [None]
